FAERS Safety Report 8216515 (Version 3)
Quarter: 2015Q2

REPORT INFORMATION
  Report Type: Spontaneous
  Country: FR (occurrence: FR)
  Receive Date: 20111031
  Receipt Date: 20150428
  Transmission Date: 20150821
  Serious: Yes (Other)
  Sender: FDA-Public Use
  Company Number: FR-ELI_LILLY_AND_COMPANY-FR201110004815

PATIENT
  Age: 62 Year
  Sex: Female
  Weight: 64 kg

DRUGS (8)
  1. ZYPADHERA [Suspect]
     Active Substance: OLANZAPINE PAMOATE
     Dosage: 210 MG, EVERY TWO WEEKS
     Route: 030
  2. NORMACOL                           /01713401/ [Concomitant]
     Indication: CONSTIPATION
     Dosage: UNK UNK, UNKNOWN
     Route: 048
     Dates: start: 20110513, end: 20111006
  3. ZYPREXA [Suspect]
     Active Substance: OLANZAPINE
     Indication: SCHIZOPHRENIA
     Dosage: UNK, UNKNOWN
     Route: 065
     Dates: end: 20111124
  4. ACTONEL [Concomitant]
     Active Substance: RISEDRONATE SODIUM
     Indication: OSTEOPOROSIS
     Dosage: UNK UNK, UNKNOWN
     Route: 065
     Dates: start: 20110501
  5. ZYPADHERA [Suspect]
     Active Substance: OLANZAPINE PAMOATE
     Indication: SCHIZOPHRENIA
     Dosage: 300 MG, EVERY 2 WEEKS
     Route: 030
     Dates: start: 20110524, end: 20110926
  6. LACTULOSE. [Concomitant]
     Active Substance: LACTULOSE
     Indication: CONSTIPATION
     Dosage: UNK UNK, UNKNOWN
     Route: 048
     Dates: start: 20110509, end: 20111004
  7. TRANSIPEG                          /01618701/ [Concomitant]
     Active Substance: POLYETHYLENE GLYCOL 3350\POTASSIUM CHLORIDE\SODIUM BICARBONATE\SODIUM CHLORIDE\SODIUM SULFATE ANHYDROUS
     Indication: CONSTIPATION
     Dosage: UNK UNK, UNKNOWN
     Route: 048
     Dates: start: 20110513, end: 20111006
  8. LOXAPAC                            /00401802/ [Concomitant]
     Active Substance: LOXAPINE SUCCINATE
     Indication: PSYCHOTIC DISORDER
     Dosage: 25 DROPS, QD
     Route: 065
     Dates: start: 20110510, end: 20110526

REACTIONS (12)
  - Deafness bilateral [Not Recovered/Not Resolved]
  - Myalgia [Unknown]
  - VIIIth nerve lesion [Recovering/Resolving]
  - Tremor [Unknown]
  - Nausea [Unknown]
  - Decreased appetite [Unknown]
  - Sedation [Unknown]
  - Overdose [Unknown]
  - Vertigo [Recovered/Resolved]
  - Fatigue [Unknown]
  - Dizziness [Recovered/Resolved]
  - Asthenia [Recovered/Resolved]

NARRATIVE: CASE EVENT DATE: 201106
